FAERS Safety Report 6097081-9 (Version None)
Quarter: 2009Q1

REPORT INFORMATION
  Report Type: 
  Country: None (occurrence: None)
  Receive Date: 20090226
  Receipt Date: 20090226
  Transmission Date: 20090719
  Serious: Yes (Life-Threatening, Hospitalization)
  Sender: FDA-Public Use
  Company Number: None

PATIENT
  Sex: Female
  Weight: 98.8842 kg

DRUGS (1)
  1. 20% BENZOCAINE HURRICAINE TOPICAL ANESTHESIA SPRAY - BEUTLICH PHARMACE [Suspect]
     Indication: ANAESTHESIA
     Dosage: 2 SPRAYS.

REACTIONS (1)
  - ANAPHYLACTIC REACTION [None]
